FAERS Safety Report 9332951 (Version 1)
Quarter: 2013Q2

REPORT INFORMATION
  Report Type: Spontaneous
  Country: JP (occurrence: JP)
  Receive Date: 20130606
  Receipt Date: 20130606
  Transmission Date: 20140414
  Serious: Yes (Other)
  Sender: FDA-Public Use
  Company Number: JP-ASTELLAS-2013JP006393

PATIENT
  Age: 50 Year
  Sex: Female

DRUGS (5)
  1. PROGRAF [Suspect]
     Indication: RHEUMATOID ARTHRITIS
     Dosage: 2 MG, UNKNOWN/D
     Route: 048
     Dates: start: 201212
  2. BIOLOGICAL PREPARATION [Concomitant]
     Indication: RHEUMATOID ARTHRITIS
     Route: 065
  3. FERRUM                             /00023505/ [Concomitant]
     Route: 048
  4. CRESTOR [Concomitant]
     Route: 048
  5. RHEUMATREX                         /00113801/ [Concomitant]
     Route: 048

REACTIONS (2)
  - Intentional drug misuse [Unknown]
  - Anosmia [Unknown]
